FAERS Safety Report 13710371 (Version 13)
Quarter: 2018Q1

REPORT INFORMATION
  Report Type: Report from Study
  Country: BR (occurrence: BR)
  Receive Date: 20170703
  Receipt Date: 20180209
  Transmission Date: 20180508
  Serious: Yes (Death, Hospitalization, Other)
  Sender: FDA-Public Use
  Company Number: BR-ROCHE-1956631

PATIENT
  Age: 76 Year
  Sex: Male
  Weight: 66.3 kg

DRUGS (29)
  1. ATEZOLIZUMAB. [Suspect]
     Active Substance: ATEZOLIZUMAB
     Indication: NON-SMALL CELL LUNG CANCER STAGE IV
     Dosage: ON DAY 1 OF EACH 21 DAY CYCLE.?ON 21/JUN/2017, THE PATIENT RECEIVED MOST RECENT DOSE (1200 MG) OF AT
     Route: 042
     Dates: start: 20170308
  2. CARBOPLATIN. [Suspect]
     Active Substance: CARBOPLATIN
     Indication: NON-SMALL CELL LUNG CANCER STAGE IV
     Dosage: AT AREA UNDER THE CONCENTRATION CURVE (AUC) 6 MILLIGRAMS PER MILLILITER PER MINUTE (MG/ML/MIN) ON DA
     Route: 042
     Dates: start: 20170308
  3. ACETYLSALICYLIC ACID [Concomitant]
     Active Substance: ASPIRIN
     Indication: PROPHYLAXIS
     Route: 065
     Dates: start: 20040205
  4. ZOFRAN [Concomitant]
     Active Substance: ONDANSETRON HYDROCHLORIDE
     Indication: PROPHYLAXIS OF NAUSEA AND VOMITING
     Route: 065
     Dates: start: 20170530, end: 20170530
  5. ZOFRAN [Concomitant]
     Active Substance: ONDANSETRON HYDROCHLORIDE
     Route: 065
     Dates: start: 20170710, end: 20170711
  6. DIPYRONE [Concomitant]
     Active Substance: DIPYRONE
     Indication: PROPHYLAXIS
     Route: 065
     Dates: start: 20170629, end: 20170629
  7. OMEPRAZOLE. [Concomitant]
     Active Substance: OMEPRAZOLE
     Indication: PROPHYLAXIS
     Route: 065
     Dates: start: 20040205
  8. SPIRONOLACTONE. [Concomitant]
     Active Substance: SPIRONOLACTONE
     Indication: ATRIAL FIBRILLATION
     Route: 065
     Dates: start: 200312
  9. METFORMIN [Concomitant]
     Active Substance: METFORMIN HYDROCHLORIDE
     Indication: DIABETES MELLITUS
     Route: 065
     Dates: start: 20110220
  10. DIAMICRON [Concomitant]
     Active Substance: GLICLAZIDE
     Indication: DIABETES MELLITUS
     Route: 065
     Dates: start: 20110220
  11. EMEND [Concomitant]
     Active Substance: APREPITANT
     Route: 065
     Dates: start: 20170530, end: 20170530
  12. CARVEDILOL. [Concomitant]
     Active Substance: CARVEDILOL
     Indication: ATRIAL FIBRILLATION
     Route: 065
     Dates: start: 200312
  13. RANITIDINE. [Concomitant]
     Active Substance: RANITIDINE
     Indication: PROPHYLAXIS
     Route: 065
     Dates: start: 20170530, end: 20170530
  14. RANITIDINE. [Concomitant]
     Active Substance: RANITIDINE
     Route: 065
     Dates: start: 20170701, end: 20170705
  15. BENADRYL (BRAZIL) [Concomitant]
     Active Substance: DIPHENHYDRAMINE HYDROCHLORIDE
     Route: 065
     Dates: start: 20170530, end: 20170530
  16. COMPLEX B [Concomitant]
     Active Substance: CALCIUM PANTOTHENATE\CYANOCOBALAMIN\NIACINAMIDE\PYRIDOXINE HYDROCHLORIDE\RIBOFLAVIN\THIAMINE MONONITRATE
     Indication: PROPHYLAXIS
     Route: 065
     Dates: start: 20170709, end: 20170709
  17. PACLITAXEL. [Suspect]
     Active Substance: PACLITAXEL
     Indication: NON-SMALL CELL LUNG CANCER STAGE IV
     Dosage: ON 30/MAY/2017, THE PATIENT RECEIVED LAST RECENT DOSE (266.08 MG) OF PACLITAXEL PRIOR TO THE EVENT O
     Route: 042
     Dates: start: 20170308
  18. FUROSEMIDE. [Concomitant]
     Active Substance: FUROSEMIDE
     Indication: ATRIAL FIBRILLATION
     Route: 065
     Dates: start: 200312
  19. FUROSEMIDE. [Concomitant]
     Active Substance: FUROSEMIDE
     Indication: OEDEMA PERIPHERAL
     Route: 065
     Dates: start: 20170509
  20. PSEUDOEPHEDRINE HYDROCHLORIDE. [Concomitant]
     Active Substance: PSEUDOEPHEDRINE HYDROCHLORIDE
     Indication: COUGH
     Route: 065
     Dates: start: 20170415
  21. PLAMET [Concomitant]
     Indication: PROPHYLAXIS
     Route: 065
     Dates: start: 20170701, end: 20170705
  22. DIMORF [Concomitant]
     Active Substance: MORPHINE SULFATE
     Indication: PROPHYLAXIS
     Route: 065
     Dates: start: 20170709, end: 20170709
  23. RANITIDINE. [Concomitant]
     Active Substance: RANITIDINE
     Route: 065
     Dates: start: 20170709, end: 20170712
  24. MAGNESIUM SULFATE. [Concomitant]
     Active Substance: MAGNESIUM SULFATE
     Indication: PROPHYLAXIS
     Route: 065
     Dates: start: 20170530, end: 20170530
  25. SPIRONOLACTONE. [Concomitant]
     Active Substance: SPIRONOLACTONE
     Indication: OEDEMA PERIPHERAL
     Route: 065
     Dates: start: 20170509
  26. ATORVASTATIN [Concomitant]
     Active Substance: ATORVASTATIN
     Indication: PROPHYLAXIS
     Route: 065
     Dates: start: 20040205
  27. ALENIA (BRAZIL) [Concomitant]
     Active Substance: BUDESONIDE\FORMOTEROL FUMARATE
     Indication: EMPHYSEMA
     Route: 065
     Dates: start: 20130222
  28. CLINDAMYCIN. [Concomitant]
     Active Substance: CLINDAMYCIN
     Indication: SKIN INFECTION
     Route: 065
     Dates: start: 20170523, end: 20170530
  29. PLAMET [Concomitant]
     Route: 065
     Dates: start: 20170709, end: 20170712

REACTIONS (2)
  - Emphysema [Recovered/Resolved]
  - Lung infection [Recovering/Resolving]

NARRATIVE: CASE EVENT DATE: 20170625
